FAERS Safety Report 16013569 (Version 3)
Quarter: 2019Q2

REPORT INFORMATION
  Report Type: Spontaneous
  Country: JP (occurrence: JP)
  Receive Date: 20190227
  Receipt Date: 20190411
  Transmission Date: 20190711
  Serious: Yes (Other)
  Sender: FDA-Public Use
  Company Number: JP-VIFOR (INTERNATIONAL) INC.-VIT-2019-01610

PATIENT
  Age: 71 Year
  Sex: Male

DRUGS (6)
  1. MIRCERA [Suspect]
     Active Substance: METHOXY POLYETHYLENE GLYCOL-EPOETIN BETA
     Dates: start: 20181113
  2. PERSANTIN [Concomitant]
     Active Substance: DIPYRIDAMOLE
     Dosage: DOSAGE IS UNCERTAIN
     Route: 048
  3. MIRCERA [Suspect]
     Active Substance: METHOXY POLYETHYLENE GLYCOL-EPOETIN BETA
     Indication: NEPHROGENIC ANAEMIA
     Route: 058
     Dates: start: 20181016
  4. IRBESARTAN. [Concomitant]
     Active Substance: IRBESARTAN
     Dosage: 1 TABLET IN ONE-DIVIDED DOSE AFTER BREAKFAST
     Route: 048
  5. NEORAL [Concomitant]
     Active Substance: CYCLOSPORINE
     Dosage: DOSAGE IS UNCERTAIN
     Route: 065
  6. BREDININ [Concomitant]
     Active Substance: MIZORIBINE
     Dosage: DOSAGE IS UNCERTAIN
     Route: 065

REACTIONS (1)
  - Anaemia [Not Recovered/Not Resolved]

NARRATIVE: CASE EVENT DATE: 201812
